FAERS Safety Report 9390233 (Version 1)
Quarter: 2013Q3

REPORT INFORMATION
  Report Type: Spontaneous
  Country: US (occurrence: US)
  Receive Date: 20130708
  Receipt Date: 20130708
  Transmission Date: 20140515
  Serious: No
  Sender: FDA-Public Use
  Company Number: US-TEVA-415440USA

PATIENT
  Age: 73 Year
  Sex: Female

DRUGS (4)
  1. PROAIR HFA [Suspect]
     Indication: BRONCHITIS
     Dates: start: 20130425, end: 20130508
  2. JANUVIA [Concomitant]
     Indication: TYPE 2 DIABETES MELLITUS
  3. LANTUS [Concomitant]
     Indication: TYPE 2 DIABETES MELLITUS
  4. HUMALOG [Concomitant]
     Indication: TYPE 2 DIABETES MELLITUS

REACTIONS (2)
  - Tinnitus [Not Recovered/Not Resolved]
  - Hallucination, auditory [Not Recovered/Not Resolved]
